FAERS Safety Report 16878784 (Version 2)
Quarter: 2020Q1

REPORT INFORMATION
  Report Type: Spontaneous
  Country: US (occurrence: US)
  Receive Date: 20191002
  Receipt Date: 20200128
  Transmission Date: 20200409
  Serious: Yes (Disabling, Other)
  Sender: FDA-Public Use
  Company Number: US-ALLERGAN-1939348US

PATIENT
  Sex: Female

DRUGS (2)
  1. OZURDEX [Suspect]
     Active Substance: DEXAMETHASONE
     Indication: RETINAL OEDEMA
     Dosage: 0.7 MG, SINGLE
     Route: 031
     Dates: start: 20181106, end: 20181106
  2. OZURDEX [Suspect]
     Active Substance: DEXAMETHASONE
     Dosage: 0.7 MG, SINGLE
     Route: 031

REACTIONS (14)
  - Impaired quality of life [Unknown]
  - Eye inflammation [Recovering/Resolving]
  - Retinal detachment [Unknown]
  - Emotional distress [Unknown]
  - Pain [Unknown]
  - Manufacturing materials contamination [Unknown]
  - Product design issue [Unknown]
  - Emotional disorder [Unknown]
  - Blindness [Unknown]
  - Eye injury [Unknown]
  - Anxiety [Unknown]
  - Corneal transplant [Unknown]
  - Corneal oedema [Not Recovered/Not Resolved]
  - Discomfort [Unknown]
